FAERS Safety Report 16866406 (Version 3)
Quarter: 2019Q4

REPORT INFORMATION
  Report Type: Spontaneous
  Country: US (occurrence: US)
  Receive Date: 20190930
  Receipt Date: 20191028
  Transmission Date: 20200122
  Serious: Yes (Other)
  Sender: FDA-Public Use
  Company Number: US-ALLERGAN-1933730US

PATIENT
  Sex: Male

DRUGS (4)
  1. VRAYLAR [Suspect]
     Active Substance: CARIPRAZINE
     Indication: SCHIZOAFFECTIVE DISORDER
     Dosage: 3 MG, QD
     Route: 048
     Dates: start: 201910
  2. VRAYLAR [Suspect]
     Active Substance: CARIPRAZINE
     Indication: BIPOLAR DISORDER
     Dosage: 1.5 MG, QD
     Route: 048
     Dates: start: 20181012
  3. VITAMINS NOS [Concomitant]
     Active Substance: VITAMINS
  4. LAMICTAL [Concomitant]
     Active Substance: LAMOTRIGINE

REACTIONS (10)
  - Feeding disorder [Recovering/Resolving]
  - Toxicity to various agents [Recovering/Resolving]
  - Malaise [Recovering/Resolving]
  - Mucosal inflammation [Recovering/Resolving]
  - Exposure to toxic agent [Recovering/Resolving]
  - Weight increased [Recovering/Resolving]
  - Depressed mood [Recovering/Resolving]
  - Retching [Recovering/Resolving]
  - Feeling abnormal [Recovering/Resolving]
  - Nausea [Recovering/Resolving]

NARRATIVE: CASE EVENT DATE: 201909
